FAERS Safety Report 4267189-9 (Version None)
Quarter: 2004Q1

REPORT INFORMATION
  Report Type: 
  Country: None (occurrence: None)
  Receive Date: 20040107
  Receipt Date: 20031225
  Transmission Date: 20041129
  Serious: Yes (Hospitalization)
  Sender: FDA-Public Use
  Company Number: 2003AP04531

PATIENT
  Age: 84 Year
  Sex: Male

DRUGS (17)
  1. OMEPRAZOLE [Suspect]
     Dosage: 20 MG DAILY PO
     Route: 048
     Dates: end: 20031126
  2. KETAS [Suspect]
     Dates: end: 20031126
  3. VIBRAMYCIN [Suspect]
     Dates: end: 20031126
  4. VOLTAREN [Suspect]
     Dosage: 50 MG DAILY PO
     Route: 048
     Dates: end: 20031126
  5. LASIX [Concomitant]
  6. DIAZEPAM [Concomitant]
  7. ASPIRIN [Concomitant]
  8. MINIPRESS [Concomitant]
  9. PURSENNID [Concomitant]
  10. DENISPAN [Concomitant]
  11. SELBEX [Concomitant]
  12. PROHEPARUM [Concomitant]
  13. VITAMEDIN CAPSULE [Concomitant]
  14. HEMONASE [Concomitant]
  15. CIRCANETTEN [Concomitant]
  16. MARZULENE [Concomitant]
  17. HALCION [Concomitant]

REACTIONS (1)
  - LEUKOPENIA [None]
